FAERS Safety Report 9493876 (Version 1)
Quarter: 2013Q3

REPORT INFORMATION
  Report Type: Spontaneous
  Country: GB (occurrence: GB)
  Receive Date: 20130902
  Receipt Date: 20130902
  Transmission Date: 20140515
  Serious: Yes (Hospitalization)
  Sender: FDA-Public Use
  Company Number: GB-AMGEN-GBRSP2013061511

PATIENT
  Age: 31 Year
  Sex: Female
  Weight: 53.97 kg

DRUGS (3)
  1. ENBREL [Suspect]
     Indication: PRODUCT USED FOR UNKNOWN INDICATION
     Dosage: 40 MG, UNK
     Route: 058
     Dates: start: 20130728, end: 20130728
  2. VITAMINS WITH MINERALS [Concomitant]
     Dosage: UNK
  3. HUMIRA [Concomitant]
     Indication: INFERTILITY
     Dosage: UNK
     Dates: start: 20130728, end: 20130728

REACTIONS (5)
  - Headache [Recovering/Resolving]
  - Pain [Recovering/Resolving]
  - Pyrexia [Recovered/Resolved]
  - Arthralgia [Recovering/Resolving]
  - Off label use [Unknown]
